FAERS Safety Report 15789219 (Version 2)
Quarter: 2019Q1

REPORT INFORMATION
  Report Type: Spontaneous
  Country: US (occurrence: US)
  Receive Date: 20190104
  Receipt Date: 20190111
  Transmission Date: 20190417
  Serious: No
  Sender: FDA-Public Use
  Company Number: US-PFIZER INC-2018533971

PATIENT
  Sex: Female

DRUGS (1)
  1. METHOTREXATE SODIUM. [Suspect]
     Active Substance: METHOTREXATE SODIUM
     Dosage: UNK
     Dates: start: 1998, end: 2014

REACTIONS (4)
  - Toxicity to various agents [Unknown]
  - Dyspnoea [Unknown]
  - Drug ineffective [Unknown]
  - Drug intolerance [Unknown]
